FAERS Safety Report 21670348 (Version 1)
Quarter: 2022Q4

REPORT INFORMATION
  Report Type: Spontaneous
  Country: US (occurrence: US)
  Receive Date: 20221201
  Receipt Date: 20221201
  Transmission Date: 20230113
  Serious: No
  Sender: FDA-Public Use
  Company Number: US-TEVA-2022-US-2829948

PATIENT
  Age: 35 Year
  Sex: Female

DRUGS (3)
  1. AJOVY [Suspect]
     Active Substance: FREMANEZUMAB-VFRM
     Indication: Migraine
     Dosage: STRENGTH: 225/1.5 MG/ML
     Route: 065
     Dates: start: 202209
  2. AJOVY [Suspect]
     Active Substance: FREMANEZUMAB-VFRM
  3. METOPROLOL [Concomitant]
     Active Substance: METOPROLOL
     Indication: Migraine prophylaxis

REACTIONS (14)
  - Generalised oedema [Not Recovered/Not Resolved]
  - Abdominal discomfort [Unknown]
  - Anxiety [Unknown]
  - Contusion [Unknown]
  - Arthralgia [Unknown]
  - Pain in extremity [Unknown]
  - Abdominal pain [Unknown]
  - Peripheral swelling [Not Recovered/Not Resolved]
  - Vomiting [Unknown]
  - Disturbance in attention [Unknown]
  - Purpura [Unknown]
  - Swelling face [Unknown]
  - Rash macular [Unknown]
  - Malaise [Unknown]

NARRATIVE: CASE EVENT DATE: 20220101
